FAERS Safety Report 5719104-6 (Version None)
Quarter: 2008Q2

REPORT INFORMATION
  Report Type: 
  Country: None (occurrence: None)
  Receive Date: 20080426
  Receipt Date: 20080423
  Transmission Date: 20081010
  Serious: Yes (Other)
  Sender: FDA-Public Use
  Company Number: US-RANBAXY-2008US-14653

PATIENT

DRUGS (3)
  1. ISOTRETINOIN [Suspect]
     Indication: DRUG USE FOR UNKNOWN INDICATION
     Dosage: 40 MG, QD
     Route: 048
     Dates: start: 20080326, end: 20080421
  2. YAZ [Concomitant]
     Indication: CONTRACEPTION
     Dates: start: 20080225
  3. YASMIN [Suspect]
     Indication: CONTRACEPTION
     Dosage: UNK, UNK

REACTIONS (2)
  - NAUSEA [None]
  - PREGNANCY [None]
